FAERS Safety Report 25720226 (Version 4)
Quarter: 2025Q3

REPORT INFORMATION
  Report Type: Spontaneous
  Country: JP (occurrence: JP)
  Receive Date: 20250825
  Receipt Date: 20250930
  Transmission Date: 20251020
  Serious: Yes (Death, Other)
  Sender: ALEXION PHARMACEUTICALS
  Company Number: JP-AstraZeneca-CH-00922774A

PATIENT
  Age: 9 Decade
  Sex: Female

DRUGS (1)
  1. ULTOMIRIS [Suspect]
     Active Substance: RAVULIZUMAB-CWVZ
     Indication: Paroxysmal nocturnal haemoglobinuria
     Dates: start: 20250703, end: 20250703

REACTIONS (2)
  - Aplastic anaemia [Fatal]
  - Physical deconditioning [Fatal]

NARRATIVE: CASE EVENT DATE: 20250701
